FAERS Safety Report 5194764-X (Version None)
Quarter: 2006Q4

REPORT INFORMATION
  Report Type: 
  Country: None (occurrence: None)
  Receive Date: 20061229
  Receipt Date: 20061211
  Transmission Date: 20070319
  Serious: Yes (Life-Threatening, Hospitalization)
  Sender: FDA-Public Use
  Company Number: JP-ELI_LILLY_AND_COMPANY-JP200612002571

PATIENT
  Sex: Male

DRUGS (8)
  1. ZYPREXA [Suspect]
     Indication: SCHIZOPHRENIA
     Dosage: 5 MG, UNK
     Route: 048
     Dates: start: 20061106
  2. HALOPERIDOL [Concomitant]
     Dosage: 3 MG, DAILY (1/D)
     Route: 048
  3. PZC [Concomitant]
     Dosage: 8 MG, DAILY (1/D)
     Route: 048
  4. NITRAZEPAM [Concomitant]
     Dosage: 5 MG, DAILY (1/D)
     Route: 048
  5. PROMETHAZINE HCL [Concomitant]
     Dosage: 25 MG, DAILY (1/D)
     Route: 048
  6. AMITRIPTYLINE HCL [Concomitant]
     Dosage: 75 MG, DAILY (1/D)
     Route: 048
  7. LEXOTAN [Concomitant]
     Dosage: 15 MG, DAILY (1/D)
     Route: 048
  8. LOXOPROFEN SODIUM [Concomitant]
     Dosage: 60 MG, DAILY (1/D)
     Route: 048

REACTIONS (2)
  - INTERSTITIAL LUNG DISEASE [None]
  - RESPIRATORY FAILURE [None]
